FAERS Safety Report 6371626-3 (Version None)
Quarter: 2009Q3

REPORT INFORMATION
  Report Type: 
  Country: None (occurrence: None)
  Receive Date: 20090923
  Receipt Date: 20081119
  Transmission Date: 20100115
  Serious: No
  Sender: FDA-Public Use
  Company Number: US-ASTRAZENECA-2007UW28375

PATIENT
  Age: 17537 Day
  Sex: Female
  Weight: 63.5 kg

DRUGS (2)
  1. SEROQUEL XR [Suspect]
     Indication: BIPOLAR I DISORDER
     Dosage: 200 MG QHS, 100 MG AM
     Route: 048
     Dates: start: 20080120, end: 20080124
  2. COLACE [Concomitant]

REACTIONS (2)
  - BREAST ENGORGEMENT [None]
  - BREAST TENDERNESS [None]
